FAERS Safety Report 8662096 (Version 5)
Quarter: 2012Q4

REPORT INFORMATION
  Report Type: 
  Country: CN (occurrence: CN)
  Receive Date: 20120712
  Receipt Date: 20121017
  Transmission Date: 20130627
  Serious: Yes (Hospitalization, Other)
  Sender: FDA-Public Use
  Company Number: CN-ROCHE-1084672

PATIENT
  Age: 39 Year
  Sex: Male

DRUGS (6)
  1. PEGASYS [Suspect]
     Indication: HEPATITIS B
     Route: 058
     Dates: start: 20120121, end: 20120511
  2. THYMOPEPTIDE [Concomitant]
     Indication: HEPATITIS B
  3. CHINESE TRADITIONAL MEDICINE [Concomitant]
     Indication: HEPATITIS B
     Route: 048
     Dates: start: 20120119, end: 20120209
  4. CHINESE PATENT MEDICINE (UNK INGREDIENTS) [Concomitant]
     Indication: HEPATITIS B
     Route: 048
     Dates: start: 20120210
  5. GLYCYRRHIZIN [Concomitant]
     Indication: HEPATITIS B
     Dosage: Unit dose is 2co, daily dose is 6co
     Route: 048
     Dates: start: 20120210
  6. LEUCOGEN (UNK INGREDIENTS) [Concomitant]
     Indication: HEPATITIS B
     Route: 048
     Dates: start: 20120121

REACTIONS (15)
  - Hepatic lesion [Unknown]
  - Splenomegaly [Not Recovered/Not Resolved]
  - Portal hypertension [Recovered/Resolved]
  - Hepatomegaly [Not Recovered/Not Resolved]
  - Gastritis haemorrhagic [Unknown]
  - Neutrophil count decreased [Recovered/Resolved]
  - Platelet count decreased [Unknown]
  - Hepatic cyst [Not Recovered/Not Resolved]
  - White blood cell count decreased [Recovered/Resolved]
  - Gamma-glutamyltransferase increased [Unknown]
  - Anxiety [Unknown]
  - Depression [Unknown]
  - Lymphadenopathy [Unknown]
  - Hepatic cirrhosis [Unknown]
  - Hypoaesthesia [Unknown]
